FAERS Safety Report 20315829 (Version 1)
Quarter: 2022Q1

REPORT INFORMATION
  Report Type: Spontaneous
  Country: US (occurrence: US)
  Receive Date: 20220110
  Receipt Date: 20220110
  Transmission Date: 20220424
  Serious: Yes (Death, Other)
  Sender: FDA-Public Use
  Company Number: US-EPICPHARMA-US-2022EPCLIT00003

PATIENT
  Age: 55 Year
  Sex: Male

DRUGS (40)
  1. MORPHINE SULFATE [Suspect]
     Active Substance: MORPHINE SULFATE
     Indication: Cancer pain
     Route: 048
  2. MORPHINE SULFATE [Suspect]
     Active Substance: MORPHINE SULFATE
     Route: 048
  3. MORPHINE SULFATE [Suspect]
     Active Substance: MORPHINE SULFATE
     Route: 048
  4. MORPHINE SULFATE [Suspect]
     Active Substance: MORPHINE SULFATE
     Route: 048
  5. MORPHINE SULFATE [Suspect]
     Active Substance: MORPHINE SULFATE
     Route: 048
  6. MORPHINE SULFATE [Suspect]
     Active Substance: MORPHINE SULFATE
     Route: 042
  7. MORPHINE SULFATE [Suspect]
     Active Substance: MORPHINE SULFATE
     Route: 048
  8. MORPHINE SULFATE [Suspect]
     Active Substance: MORPHINE SULFATE
     Route: 048
  9. MORPHINE SULFATE [Suspect]
     Active Substance: MORPHINE SULFATE
     Route: 065
  10. MORPHINE SULFATE [Suspect]
     Active Substance: MORPHINE SULFATE
     Route: 048
  11. MORPHINE SULFATE [Suspect]
     Active Substance: MORPHINE SULFATE
     Route: 048
  12. MORPHINE SULFATE [Suspect]
     Active Substance: MORPHINE SULFATE
     Route: 042
  13. MORPHINE SULFATE [Suspect]
     Active Substance: MORPHINE SULFATE
     Route: 042
  14. MORPHINE SULFATE [Suspect]
     Active Substance: MORPHINE SULFATE
     Dosage: 15 MG/HOUR
     Route: 065
  15. MORPHINE SULFATE [Suspect]
     Active Substance: MORPHINE SULFATE
     Route: 065
  16. MORPHINE SULFATE [Suspect]
     Active Substance: MORPHINE SULFATE
     Route: 065
  17. OXYCONTIN [Suspect]
     Active Substance: OXYCODONE HYDROCHLORIDE
     Indication: Cancer pain
     Dosage: EXTENDED RELEASE
     Route: 048
  18. HYDROMORPHONE [Suspect]
     Active Substance: HYDROMORPHONE
     Indication: Cancer pain
     Route: 042
  19. HYDROMORPHONE [Suspect]
     Active Substance: HYDROMORPHONE
     Route: 042
  20. HYDROMORPHONE [Suspect]
     Active Substance: HYDROMORPHONE
     Route: 042
  21. HYDROMORPHONE [Suspect]
     Active Substance: HYDROMORPHONE
     Dosage: EVERY 4 HOURS AS PER NEEDED
     Route: 042
  22. HYDROMORPHONE [Suspect]
     Active Substance: HYDROMORPHONE
     Route: 042
  23. HYDROMORPHONE [Suspect]
     Active Substance: HYDROMORPHONE
     Route: 065
  24. HYDROMORPHONE [Suspect]
     Active Substance: HYDROMORPHONE
     Route: 042
  25. HYDROMORPHONE [Suspect]
     Active Substance: HYDROMORPHONE
     Route: 065
  26. DIAZEPAM [Suspect]
     Active Substance: DIAZEPAM
     Route: 048
  27. DIAZEPAM [Suspect]
     Active Substance: DIAZEPAM
     Route: 048
  28. DIAZEPAM [Suspect]
     Active Substance: DIAZEPAM
     Route: 048
  29. DIAZEPAM [Suspect]
     Active Substance: DIAZEPAM
     Route: 048
  30. CLONIDINE [Suspect]
     Active Substance: CLONIDINE
     Route: 065
  31. CLONIDINE [Suspect]
     Active Substance: CLONIDINE
     Route: 065
  32. LORAZEPAM [Suspect]
     Active Substance: LORAZEPAM
     Indication: Anxiety
     Route: 065
  33. TRAZODONE [Suspect]
     Active Substance: TRAZODONE HYDROCHLORIDE
     Indication: Cancer pain
     Route: 065
  34. TRAZODONE [Suspect]
     Active Substance: TRAZODONE HYDROCHLORIDE
     Route: 065
  35. LIDOCAINE [Suspect]
     Active Substance: LIDOCAINE
     Indication: Cancer pain
     Route: 065
  36. LIDOCAINE [Suspect]
     Active Substance: LIDOCAINE
     Route: 065
  37. TRAMADOL [Suspect]
     Active Substance: TRAMADOL
     Indication: Cancer pain
     Route: 065
  38. ACETAMINOPHEN\OXYCODONE HYDROCHLORIDE [Concomitant]
     Active Substance: ACETAMINOPHEN\OXYCODONE HYDROCHLORIDE
     Indication: Pain
     Dosage: 10/325MG
     Route: 065
  39. GABAPENTIN [Concomitant]
     Active Substance: GABAPENTIN
     Indication: Pain
     Route: 065
  40. METHADONE [Concomitant]
     Active Substance: METHADONE HYDROCHLORIDE
     Indication: Pain
     Route: 065

REACTIONS (2)
  - Drug ineffective [Unknown]
  - Death [Fatal]
